FAERS Safety Report 12695463 (Version 1)
Quarter: 2016Q3

REPORT INFORMATION
  Report Type: Spontaneous
  Country: US (occurrence: US)
  Receive Date: 20160829
  Receipt Date: 20160829
  Transmission Date: 20161109
  Serious: No
  Sender: FDA-Public Use
  Company Number: US-TARO-2015TAR00753

PATIENT
  Sex: Female

DRUGS (2)
  1. CLOTRIMAZOLE TOPICAL SOLUTION USP 1% [Suspect]
     Active Substance: CLOTRIMAZOLE
     Dosage: 1 DOSAGE UNITS, ONCE
     Route: 047
     Dates: start: 20150809, end: 20150809
  2. CLOTRIMAZOLE TOPICAL SOLUTION USP 1% [Suspect]
     Active Substance: CLOTRIMAZOLE
     Dosage: UNK
     Route: 001

REACTIONS (4)
  - Eye pain [Recovered/Resolved]
  - Incorrect route of drug administration [Recovered/Resolved]
  - Accidental exposure to product [Recovered/Resolved]
  - Wrong drug administered [Recovered/Resolved]

NARRATIVE: CASE EVENT DATE: 20150809
